FAERS Safety Report 9303049 (Version 1)
Quarter: 2013Q2

REPORT INFORMATION
  Report Type: Spontaneous
  Country: US (occurrence: None)
  Receive Date: 20130517
  Receipt Date: 20130517
  Transmission Date: 20140414
  Serious: Yes (Hospitalization)
  Sender: FDA-Public Use
  Company Number: DKLU1090913

PATIENT
  Age: 45 Year
  Sex: Female

DRUGS (2)
  1. DESOXYN (METHAMPHETAMINE HCL) [Suspect]
     Indication: PRODUCT USED FOR UNKNOWN INDICATION
  2. COCAINE (COCAINE) [Suspect]
     Indication: PRODUCT USED FOR UNKNOWN INDICATION

REACTIONS (9)
  - Dyspnoea [None]
  - Exercise tolerance decreased [None]
  - Pulmonary arterial hypertension [None]
  - Oedema peripheral [None]
  - Abdominal distension [None]
  - Weight increased [None]
  - Tricuspid valve incompetence [None]
  - Arteriovenous malformation [None]
  - Hereditary haemorrhagic telangiectasia [None]
